FAERS Safety Report 5000084-6 (Version None)
Quarter: 2006Q2

REPORT INFORMATION
  Report Type: 
  Country: None (occurrence: None)
  Receive Date: 20060509
  Receipt Date: 20060420
  Transmission Date: 20061013
  Serious: No
  Sender: FDA-Public Use
  Company Number: JP200604002827

PATIENT
  Age: 72 Year
  Sex: Female

DRUGS (7)
  1. HUMALOG MIX 75/25 [Suspect]
     Indication: DIABETES MELLITUS NON-INSULIN-DEPENDENT
     Dosage: SUBCUTANEOUS
     Route: 058
     Dates: start: 20050901, end: 20060301
  2. HUMACART REGULAR(HUMAN INSULIN (RDNA ORIGIN) REGULAR) PEN,DISPOSABLE [Suspect]
     Indication: DIABETES MELLITUS NON-INSULIN-DEPENDENT
     Dosage: SUBCUTANEOUS
     Route: 058
     Dates: start: 20060401
  3. HUMACART NPH(HUMAN INSULIN (RDNA ORIGIN) NPH) PEN,DISPOSABLE [Suspect]
     Indication: DIABETES MELLITUS NON-INSULIN-DEPENDENT
     Dosage: SUBCUTANEOUS
     Route: 058
     Dates: start: 20060401
  4. HUMALOG MIX 25L /75NPL PEN [Concomitant]
  5. HUMULIN R PEN (HUMULIN R PEN) PEN, DISPOSABLE [Concomitant]
  6. HUMULIN N PEN (HUMULIN N PEN) PEN, DISPOSABLE [Concomitant]
  7. NOVOLIN R [Concomitant]

REACTIONS (3)
  - COLD SWEAT [None]
  - MALAISE [None]
  - PYREXIA [None]
